FAERS Safety Report 25282479 (Version 2)
Quarter: 2025Q2

REPORT INFORMATION
  Report Type: Spontaneous
  Country: US (occurrence: US)
  Receive Date: 20250508
  Receipt Date: 20250519
  Transmission Date: 20250717
  Serious: Yes (Disabling, Other)
  Sender: AUROBINDO
  Company Number: US-MLMSERVICE-20250418-PI482668-00312-1

PATIENT
  Age: 71 Year
  Sex: Male

DRUGS (1)
  1. TESTOSTERONE [Suspect]
     Active Substance: TESTOSTERONE
     Indication: Hormone replacement therapy
     Route: 065

REACTIONS (3)
  - Blindness transient [Recovered/Resolved]
  - Polycythaemia [Unknown]
  - Hypercoagulation [Unknown]
